FAERS Safety Report 25475176 (Version 1)
Quarter: 2025Q2

REPORT INFORMATION
  Report Type: Spontaneous
  Country: CN (occurrence: CN)
  Receive Date: 20250624
  Receipt Date: 20250624
  Transmission Date: 20250716
  Serious: Yes (Life-Threatening)
  Sender: MERCK SHARP & DOHME LLC
  Company Number: CN-009507513-2297535

PATIENT
  Age: 68 Year
  Sex: Female
  Weight: 42.5 kg

DRUGS (6)
  1. PEMBROLIZUMAB [Suspect]
     Active Substance: PEMBROLIZUMAB
     Indication: Lip and/or oral cavity cancer
     Dates: start: 20250515, end: 20250515
  2. PEMBROLIZUMAB [Suspect]
     Active Substance: PEMBROLIZUMAB
     Indication: Lip and/or oral cavity cancer
     Route: 041
     Dates: start: 20250606, end: 20250606
  3. CETUXIMAB [Concomitant]
     Active Substance: CETUXIMAB
     Indication: Lip and/or oral cavity cancer
     Dates: start: 20250515, end: 20250515
  4. CETUXIMAB [Concomitant]
     Active Substance: CETUXIMAB
     Indication: Lip and/or oral cavity cancer
     Route: 041
     Dates: start: 20250606, end: 20250606
  5. PACLITAXEL [Concomitant]
     Active Substance: PACLITAXEL
     Indication: Lip and/or oral cavity cancer
     Dates: start: 20250516, end: 20250516
  6. PACLITAXEL [Concomitant]
     Active Substance: PACLITAXEL
     Indication: Lip and/or oral cavity cancer
     Route: 041
     Dates: start: 20250607, end: 20250607

REACTIONS (2)
  - Myocarditis [Unknown]
  - Inappropriate schedule of product administration [Unknown]

NARRATIVE: CASE EVENT DATE: 20250606
